FAERS Safety Report 4330286-3 (Version None)
Quarter: 2004Q2

REPORT INFORMATION
  Report Type: 
  Country: None (occurrence: None)
  Receive Date: 20040402
  Receipt Date: 20040326
  Transmission Date: 20050107
  Serious: Yes (Death, Other)
  Sender: FDA-Public Use
  Company Number: PHBS2004SE04163

PATIENT
  Age: 89 Year
  Sex: Male

DRUGS (2)
  1. LIORESAL [Suspect]
     Route: 048
  2. TRIOBE [Concomitant]

REACTIONS (5)
  - DIFFICULTY IN WALKING [None]
  - DRUG LEVEL INCREASED [None]
  - FATIGUE [None]
  - INTENTIONAL OVERDOSE [None]
  - PNEUMONIA [None]
